FAERS Safety Report 24302111 (Version 2)
Quarter: 2024Q3

REPORT INFORMATION
  Report Type: Spontaneous
  Country: US (occurrence: US)
  Receive Date: 20240910
  Receipt Date: 20240924
  Transmission Date: 20241016
  Serious: No
  Sender: Haleon PLC
  Company Number: US-HALEON-2195354

PATIENT

DRUGS (2)
  1. NICODERM CQ [Suspect]
     Active Substance: NICOTINE
     Indication: Smoking cessation therapy
  2. NICORETTE ORIGINAL [Suspect]
     Active Substance: NICOTINE
     Indication: Smoking cessation therapy

REACTIONS (5)
  - Application site pruritus [Unknown]
  - Drug effect less than expected [Unknown]
  - Product adhesion issue [Unknown]
  - Pruritus [Unknown]
  - Pain in extremity [Unknown]
